FAERS Safety Report 14587639 (Version 1)
Quarter: 2018Q1

REPORT INFORMATION
  Report Type: Spontaneous
  Country: US (occurrence: US)
  Receive Date: 20180301
  Receipt Date: 20180301
  Transmission Date: 20180509
  Serious: No
  Sender: FDA-Public Use
  Company Number: US-BRACCO DIAGNOSTICS, INC.-2017US04071

PATIENT
  Age: 56 Year
  Sex: Female

DRUGS (1)
  1. ISOVUE [Suspect]
     Active Substance: IOPAMIDOL
     Indication: SPINAL MYELOGRAM
     Dosage: 20 ML, SINGLE
     Route: 037
     Dates: start: 20170831, end: 20170831

REACTIONS (3)
  - No adverse event [Unknown]
  - Incorrect route of drug administration [Unknown]
  - Wrong drug administered [Unknown]

NARRATIVE: CASE EVENT DATE: 20170831
